FAERS Safety Report 6070948-3 (Version None)
Quarter: 2009Q1

REPORT INFORMATION
  Report Type: 
  Country: None (occurrence: None)
  Receive Date: 20090209
  Receipt Date: 20090202
  Transmission Date: 20090719
  Serious: Yes (Hospitalization, Disabling, Congenital Anomaly)
  Sender: FDA-Public Use
  Company Number: A0681866A

PATIENT
  Sex: Male
  Weight: 3.9 kg

DRUGS (11)
  1. PAXIL [Suspect]
     Indication: POST-TRAUMATIC STRESS DISORDER
     Dates: start: 20021101
  2. PAROXETINE HCL [Suspect]
     Dates: start: 20021101
  3. PAXIL CR [Suspect]
     Dates: start: 20021101
  4. VITAMIN TAB [Concomitant]
  5. WELLBUTRIN SR [Concomitant]
     Dosage: 150MG TWICE PER DAY
  6. TRAZODONE HCL [Concomitant]
     Dosage: 150MG AS REQUIRED
  7. SYNTHROID [Concomitant]
  8. PROPRANOLOL [Concomitant]
  9. ALBUTEROL [Concomitant]
  10. COMBIVENT [Concomitant]
     Dates: start: 20060201
  11. TYLENOL [Concomitant]

REACTIONS (14)
  - ASTHMA [None]
  - BRONCHIOLITIS [None]
  - CYANOSIS [None]
  - DRUG EXPOSURE DURING PREGNANCY [None]
  - DYSPNOEA [None]
  - EPILEPSY [None]
  - HYPOTHYROIDISM [None]
  - LUNG DISORDER [None]
  - PULMONARY HYPERTENSION [None]
  - RESPIRATORY SYNCYTIAL VIRUS INFECTION [None]
  - TRANSIENT TACHYPNOEA OF THE NEWBORN [None]
  - VENTRICULAR SEPTAL DEFECT [None]
  - VISUAL IMPAIRMENT [None]
  - WHEEZING [None]
